FAERS Safety Report 10243127 (Version 1)
Quarter: 2014Q2

REPORT INFORMATION
  Report Type: Spontaneous
  Country: US (occurrence: US)
  Receive Date: 20140618
  Receipt Date: 20140618
  Transmission Date: 20141212
  Serious: No
  Sender: FDA-Public Use
  Company Number: US-BAYER-2014-091187

PATIENT
  Sex: Female

DRUGS (1)
  1. BETASERON [Suspect]

REACTIONS (4)
  - Swelling [None]
  - Rash [None]
  - Hyperhidrosis [None]
  - Malaise [None]
